FAERS Safety Report 9594973 (Version 2)
Quarter: 2013Q4

REPORT INFORMATION
  Report Type: Spontaneous
  Country: US (occurrence: US)
  Receive Date: 20131004
  Receipt Date: 20131004
  Transmission Date: 20140711
  Serious: No
  Sender: FDA-Public Use
  Company Number: US-PURDUE-USA-2012-0091167

PATIENT
  Age: 47 Year
  Sex: Female
  Weight: 71.66 kg

DRUGS (4)
  1. BUTRANS [Suspect]
     Indication: MYALGIA
     Dosage: 5 MCG/HR, UNK
     Route: 062
     Dates: start: 20120625
  2. EFFEXOR XR [Concomitant]
     Indication: DEPRESSION
     Dosage: 150 MG, DAILY
  3. ADDERALL [Concomitant]
     Indication: ATTENTION DEFICIT/HYPERACTIVITY DISORDER
     Dosage: 20 MG, DAILY
  4. AZURETTE [Concomitant]
     Indication: CONTRACEPTION
     Dosage: BIPHASIC, 1, QD

REACTIONS (1)
  - Application site pruritus [Not Recovered/Not Resolved]
